FAERS Safety Report 20492716 (Version 1)
Quarter: 2022Q1

REPORT INFORMATION
  Report Type: Spontaneous
  Country: FR (occurrence: FR)
  Receive Date: 20220219
  Receipt Date: 20220219
  Transmission Date: 20220423
  Serious: Yes (Hospitalization)
  Sender: FDA-Public Use
  Company Number: None

PATIENT
  Age: 41 Year
  Sex: Male

DRUGS (2)
  1. CISPLATIN [Suspect]
     Active Substance: CISPLATIN
     Indication: Rectal adenocarcinoma
     Dosage: STRENGTH: 1 MG/ML
     Route: 042
     Dates: start: 20211217, end: 20211217
  2. ETOPOSIDE [Suspect]
     Active Substance: ETOPOSIDE
     Indication: Rectal adenocarcinoma
     Route: 042
     Dates: start: 20211217, end: 20211217

REACTIONS (2)
  - Atrial fibrillation [Recovering/Resolving]
  - Off label use [Unknown]

NARRATIVE: CASE EVENT DATE: 20211218
